FAERS Safety Report 9765303 (Version 1)
Quarter: 2013Q4

REPORT INFORMATION
  Report Type: Spontaneous
  Country: US (occurrence: US)
  Receive Date: 20131217
  Receipt Date: 20131217
  Transmission Date: 20140711
  Serious: No
  Sender: FDA-Public Use
  Company Number: US-GLAXOSMITHKLINE-A1005412A

PATIENT
  Age: 76 Year
  Sex: Male
  Weight: 87 kg

DRUGS (6)
  1. VOTRIENT [Suspect]
     Indication: PRODUCT USED FOR UNKNOWN INDICATION
     Dosage: 800MG PER DAY
     Route: 048
     Dates: start: 20121120, end: 20121127
  2. METOPROLOL [Concomitant]
  3. OXYCODONE [Concomitant]
  4. AMLODIPINE [Concomitant]
  5. GABAPENTIN [Concomitant]
  6. WARFARIN [Concomitant]

REACTIONS (3)
  - Abdominal pain upper [Recovering/Resolving]
  - Blood bilirubin increased [Recovering/Resolving]
  - Fatigue [Recovering/Resolving]
